FAERS Safety Report 4898062-0 (Version None)
Quarter: 2006Q1

REPORT INFORMATION
  Report Type: 
  Country: None (occurrence: None)
  Receive Date: 20060130
  Receipt Date: 20060117
  Transmission Date: 20060701
  Serious: Yes (Hospitalization)
  Sender: FDA-Public Use
  Company Number: WAES 0601USA01723

PATIENT
  Age: 69 Year
  Sex: Male
  Weight: 92.9874 kg

DRUGS (6)
  1. DECADRON [Suspect]
     Dosage: PO
     Route: 048
  2. TEMODAR [Suspect]
     Indication: OLIGODENDROGLIOMA
     Dosage: 160 MG/DAILY/PO
     Route: 048
     Dates: start: 20051214, end: 20060101
  3. DEPAKOTE [Concomitant]
  4. KEPPRA [Concomitant]
  5. LAMICTAL [Concomitant]
  6. NEURONTIN [Concomitant]

REACTIONS (1)
  - PNEUMONIA [None]
